FAERS Safety Report 6883360-1 (Version None)
Quarter: 2010Q3

REPORT INFORMATION
  Report Type: 
  Country: None (occurrence: None)
  Receive Date: 20100727
  Receipt Date: 20071004
  Transmission Date: 20110219
  Serious: Yes (Hospitalization, Other)
  Sender: FDA-Public Use
  Company Number: US-PFIZER INC-2006108188

PATIENT
  Sex: Female
  Weight: 95.3 kg

DRUGS (9)
  1. CELEBREX [Suspect]
     Indication: PAIN
     Dates: start: 20010504
  2. CELEBREX [Suspect]
     Indication: OSTEOARTHRITIS
  3. VIOXX [Suspect]
     Indication: PAIN
     Dates: start: 20010309, end: 20010408
  4. VIOXX [Suspect]
     Indication: OSTEOARTHRITIS
  5. ACETAMINOPHEN AND HYDROCODONE BITARTRATE [Concomitant]
     Indication: OSTEOARTHRITIS
     Dates: start: 19981007, end: 19981014
  6. INDOMETHACIN [Concomitant]
     Dates: start: 19990707, end: 19990717
  7. ZESTRIL [Concomitant]
     Indication: HYPERTENSION
     Dates: start: 19970319, end: 20020617
  8. TOPROL-XL [Concomitant]
     Indication: HYPERTENSION
     Dates: start: 19970903, end: 20020530
  9. ZOCOR [Concomitant]
     Indication: BLOOD CHOLESTEROL INCREASED
     Dates: start: 19970327, end: 19980303

REACTIONS (1)
  - MYOCARDIAL INFARCTION [None]
